FAERS Safety Report 7922601-6 (Version None)
Quarter: 2011Q4

REPORT INFORMATION
  Report Type: 
  Country: None (occurrence: None)
  Receive Date: 20111117
  Receipt Date: 20110104
  Transmission Date: 20120403
  Serious: No
  Sender: FDA-Public Use
  Company Number: US-ALLERGAN-1100045US

PATIENT
  Age: 70 Year
  Sex: Female

DRUGS (4)
  1. COMBIGAN [Suspect]
     Indication: INTRAOCULAR PRESSURE INCREASED
     Dosage: UNK
     Dates: start: 20110103, end: 20110103
  2. OFLOXIN                            /00731801/ [Concomitant]
     Route: 047
  3. KENALOG [Concomitant]
     Dosage: UNK
     Route: 047
     Dates: start: 20110103
  4. PREDNISONE DROPS [Concomitant]
     Dosage: UNK
     Route: 047

REACTIONS (1)
  - EYE IRRITATION [None]
